FAERS Safety Report 13440334 (Version 1)
Quarter: 2017Q2

REPORT INFORMATION
  Report Type: Spontaneous
  Country: US (occurrence: US)
  Receive Date: 20170413
  Receipt Date: 20170413
  Transmission Date: 20170830
  Serious: Yes (Other)
  Sender: FDA-Public Use
  Company Number: US-ZYDUS-014554

PATIENT
  Age: 8 Decade
  Sex: Female

DRUGS (3)
  1. PREDNISONE/PREDNISONE ACETATE [Concomitant]
     Indication: IMMUNOSUPPRESSION
     Route: 065
  2. SIROLIMUS. [Suspect]
     Active Substance: SIROLIMUS
     Indication: IMMUNOSUPPRESSION
     Route: 065
  3. ACITRETIN. [Suspect]
     Active Substance: ACITRETIN
     Indication: PROPHYLAXIS
     Route: 065

REACTIONS (6)
  - Impaired healing [Recovered/Resolved]
  - Disease progression [Recovered/Resolved]
  - Skin ulcer [Recovered/Resolved]
  - Mouth ulceration [Recovered/Resolved]
  - Arterial stenosis [Recovered/Resolved]
  - Mucosal inflammation [Recovered/Resolved]
